FAERS Safety Report 10678182 (Version 1)
Quarter: 2014Q4

REPORT INFORMATION
  Report Type: Spontaneous
  Country: US (occurrence: None)
  Receive Date: 20141223
  Receipt Date: 20141223
  Transmission Date: 20150529
  Serious: Yes (Life-Threatening, Hospitalization, Other)
  Sender: FDA-Public Use
  Company Number: US2014GSK039288

PATIENT
  Age: 48 Year
  Sex: Female

DRUGS (1)
  1. TRIUMEQ [Suspect]
     Active Substance: ABACAVIR SULFATE\DOLUTEGRAVIR SODIUM\LAMIVUDINE
     Indication: HIV INFECTION
     Route: 048
     Dates: start: 20141009

REACTIONS (5)
  - Respiratory failure [None]
  - Diabetic ketoacidosis [None]
  - Malaise [None]
  - Pancreatitis acute [None]
  - Unresponsive to stimuli [None]

NARRATIVE: CASE EVENT DATE: 20141125
